FAERS Safety Report 10665107 (Version 3)
Quarter: 2017Q1

REPORT INFORMATION
  Report Type: Spontaneous
  Country: US (occurrence: US)
  Receive Date: 20141219
  Receipt Date: 20170217
  Transmission Date: 20170428
  Serious: Yes (Disabling, Other)
  Sender: FDA-Public Use
  Company Number: US-009507513-1204USA04462

PATIENT
  Sex: Male
  Weight: 86.62 kg

DRUGS (4)
  1. PROSCAR [Suspect]
     Active Substance: FINASTERIDE
     Indication: ALOPECIA
     Dosage: 5 MG, QD
     Route: 048
     Dates: start: 20011220, end: 20060412
  2. PROSCAR [Suspect]
     Active Substance: FINASTERIDE
     Dosage: 1.25 MG, UNK
     Route: 048
     Dates: start: 2001, end: 2006
  3. PROPECIA [Suspect]
     Active Substance: FINASTERIDE
     Indication: ALOPECIA
     Dosage: 1 MG, QD
     Route: 048
     Dates: start: 19990331, end: 20010916
  4. FINASTERIDE. [Suspect]
     Active Substance: FINASTERIDE
     Dosage: 5 MG, AS DIRECTED
     Route: 048
     Dates: start: 20071010, end: 20081220

REACTIONS (18)
  - Drug administration error [Unknown]
  - Lower limb fracture [Unknown]
  - Loss of libido [Unknown]
  - Wrong technique in product usage process [Unknown]
  - Anxiety [Unknown]
  - Erectile dysfunction [Unknown]
  - Fatigue [Unknown]
  - Varicocele [Unknown]
  - Cognitive disorder [Unknown]
  - Sexual dysfunction [Unknown]
  - Depression [Unknown]
  - Hydrocele [Unknown]
  - Loss of libido [Unknown]
  - Ejaculation disorder [Unknown]
  - Libido decreased [Unknown]
  - Ejaculation failure [Unknown]
  - Cataract [Unknown]
  - Eye laser surgery [Unknown]

NARRATIVE: CASE EVENT DATE: 2001
